FAERS Safety Report 17475210 (Version 2)
Quarter: 2020Q1

REPORT INFORMATION
  Report Type: Report from Study
  Country: IL (occurrence: IL)
  Receive Date: 20200228
  Receipt Date: 20200318
  Transmission Date: 20200409
  Serious: Yes (Other)
  Sender: FDA-Public Use
  Company Number: IL-EMD SERONO-9144538

PATIENT
  Age: 43 Year
  Sex: Female
  Weight: 70 kg

DRUGS (2)
  1. MAVENCLAD [Suspect]
     Active Substance: CLADRIBINE
     Indication: RELAPSING MULTIPLE SCLEROSIS
     Dosage: MONTH ONE THERAPY: PATIENT HAD TAKEN TOTAL OF 7 PILLS AS OF 20 FEB 2020.
     Route: 048
     Dates: start: 20200127
  2. MAVENCLAD [Suspect]
     Active Substance: CLADRIBINE
     Dosage: MONTH TWO THERAPY
     Route: 048

REACTIONS (7)
  - Thrombocytopenia [Not Recovered/Not Resolved]
  - Rash pustular [Unknown]
  - Erythema [Unknown]
  - Rash [Recovering/Resolving]
  - Pain in extremity [Unknown]
  - Thrombosis [Unknown]
  - Feeling hot [Unknown]

NARRATIVE: CASE EVENT DATE: 20200201
